FAERS Safety Report 4449148-6 (Version None)
Quarter: 2004Q3

REPORT INFORMATION
  Report Type: 
  Country: None (occurrence: None)
  Receive Date: 20040909
  Receipt Date: 20040824
  Transmission Date: 20050211
  Serious: Yes (Hospitalization)
  Sender: FDA-Public Use
  Company Number: 28300

PATIENT
  Age: 22 Month
  Sex: Male
  Weight: 9.9791 kg

DRUGS (1)
  1. TRIFLURIDINE [Suspect]
     Indication: EAR INFECTION
     Dates: start: 20040412, end: 20040417

REACTIONS (3)
  - COLITIS [None]
  - EAR DISCOMFORT [None]
  - MEDICATION ERROR [None]
